FAERS Safety Report 5305809-8 (Version None)
Quarter: 2007Q2

REPORT INFORMATION
  Report Type: 
  Country: None (occurrence: None)
  Receive Date: 20070424
  Receipt Date: 20070411
  Transmission Date: 20071010
  Serious: Yes (Hospitalization, Disabling, Other)
  Sender: FDA-Public Use
  Company Number: US-ELI_LILLY_AND_COMPANY-US200701003809

PATIENT
  Age: 90 Year
  Sex: Female

DRUGS (7)
  1. FORTEO [Suspect]
     Indication: OSTEOPOROSIS
     Dosage: 20 UG, DAILY (1/D)
     Dates: start: 20060823
  2. FORTEO [Suspect]
     Dosage: 20 UG, DAILY (1/D)
  3. TOPROL-XL [Concomitant]
     Indication: BLOOD PRESSURE
     Dosage: 12.5 MG, DAILY (1/D)
  4. TOPROL-XL [Concomitant]
     Dosage: 25 MG, DAILY (1/D)
     Dates: start: 20061101
  5. PROTONIX [Concomitant]
     Indication: NAUSEA
  6. OXYCONTIN [Concomitant]
     Indication: PAIN
  7. NEXIUM [Concomitant]

REACTIONS (10)
  - ADVERSE DRUG REACTION [None]
  - ASTHENIA [None]
  - BLOOD PRESSURE INCREASED [None]
  - DEEP VEIN THROMBOSIS [None]
  - FALL [None]
  - HAEMORRHAGE [None]
  - HUMERUS FRACTURE [None]
  - LIMB IMMOBILISATION [None]
  - OEDEMA PERIPHERAL [None]
  - PULMONARY EMBOLISM [None]
